FAERS Safety Report 16008832 (Version 1)
Quarter: 2019Q1

REPORT INFORMATION
  Report Type: Report from Study
  Country: US (occurrence: US)
  Receive Date: 20190225
  Receipt Date: 20190225
  Transmission Date: 20190418
  Serious: Yes (Death)
  Sender: FDA-Public Use
  Company Number: US-TEVA-2019-US-1014717

PATIENT
  Sex: Female

DRUGS (3)
  1. AUSTEDO [Suspect]
     Active Substance: DEUTETRABENAZINE
     Route: 065
     Dates: start: 20180813
  2. AUSTEDO [Suspect]
     Active Substance: DEUTETRABENAZINE
     Dosage: NEW TITRATION  PATIENT
     Route: 065
     Dates: start: 20180622
  3. AUSTEDO [Suspect]
     Active Substance: DEUTETRABENAZINE
     Route: 065
     Dates: end: 20180712

REACTIONS (1)
  - Death [Fatal]
